FAERS Safety Report 23287468 (Version 1)
Quarter: 2023Q4

REPORT INFORMATION
  Report Type: Spontaneous
  Country: US (occurrence: US)
  Receive Date: 20231212
  Receipt Date: 20231212
  Transmission Date: 20240109
  Serious: Yes (Other)
  Sender: FDA-Public Use
  Company Number: US-ENDO PHARMACEUTICALS INC-2023-002748

PATIENT
  Sex: Male

DRUGS (3)
  1. PERCOCET [Suspect]
     Active Substance: ACETAMINOPHEN\OXYCODONE HYDROCHLORIDE
     Indication: Road traffic accident
     Dosage: 10 MILLIGRAM, TID
     Route: 065
  2. PERCOCET [Suspect]
     Active Substance: ACETAMINOPHEN\OXYCODONE HYDROCHLORIDE
     Dosage: 5 MILLIGRAM, DAILY
     Route: 065
  3. XANAX [Suspect]
     Active Substance: ALPRAZOLAM
     Indication: Road traffic accident
     Dosage: 2 MILLIGRAM, QID
     Route: 065

REACTIONS (7)
  - Fall [Unknown]
  - Back injury [Unknown]
  - Somnolence [Unknown]
  - Syncope [Unknown]
  - Dependence [Unknown]
  - Withdrawal syndrome [Unknown]
  - Overdose [Unknown]
